FAERS Safety Report 7942048-6 (Version None)
Quarter: 2011Q4

REPORT INFORMATION
  Report Type: 
  Country: None (occurrence: None)
  Receive Date: 20111114
  Receipt Date: 20110831
  Transmission Date: 20120403
  Serious: Yes (Other)
  Sender: FDA-Public Use
  Company Number: 2011029687

PATIENT
  Age: 61 Year
  Sex: Female
  Weight: 92.5 kg

DRUGS (1)
  1. HIZENTRA [Suspect]
     Indication: PRIMARY IMMUNODEFICIENCY SYNDROME
     Dosage: (SUBCUTANEOUS), (60 ML 3X/WEEK SUBCUTANEOUS)
     Route: 058
     Dates: start: 20100901

REACTIONS (1)
  - DRUG INEFFECTIVE [None]
